FAERS Safety Report 7141514-3 (Version None)
Quarter: 2010Q4

REPORT INFORMATION
  Report Type: 
  Country: None (occurrence: None)
  Receive Date: 20101119
  Receipt Date: 20100621
  Transmission Date: 20110411
  Serious: Yes (Disabling)
  Sender: FDA-Public Use
  Company Number: UTC-001183

PATIENT
  Sex: Male
  Weight: 75 kg

DRUGS (7)
  1. TYVASO [Suspect]
     Indication: PULMONARY HYPERTENSION
     Dosage: 216 MCG (54 MCG, 4 IN 1 D), INHALATION
     Route: 055
     Dates: start: 20100329, end: 20100520
  2. PREDNISONE TAB [Concomitant]
  3. DIGOXIN [Concomitant]
  4. SINGULAIR [Concomitant]
  5. NEXIUM [Concomitant]
  6. LIPITOR [Concomitant]
  7. ASPIRIN [Concomitant]

REACTIONS (1)
  - MYALGIA [None]
